FAERS Safety Report 8567863-X (Version None)
Quarter: 2012Q3

REPORT INFORMATION
  Report Type: 
  Country: None (occurrence: None)
  Receive Date: 20120803
  Receipt Date: 20120622
  Transmission Date: 20120928
  Serious: No
  Sender: FDA-Public Use
  Company Number: US-BRISTOL-MYERS SQUIBB COMPANY-14290084

PATIENT
  Age: 59 Year
  Sex: Male
  Weight: 81 kg

DRUGS (11)
  1. AVAPRO [Suspect]
     Indication: HYPERTENSION
     Route: 048
     Dates: start: 20030528
  2. LIPITOR [Suspect]
  3. LANTUS [Suspect]
     Dosage: 1 DOSAGE FORM= 54 UNITS ALSO ON 64UNITS
  4. GLUCOVANCE [Suspect]
     Indication: DIABETES MELLITUS
     Dosage: 1 DOSAGE FORM= 2.5/500MG.
     Route: 048
     Dates: start: 20030528
  5. ASPIRIN [Suspect]
  6. LORATADINE [Concomitant]
  7. LYRICA [Concomitant]
  8. PROTONIX [Suspect]
  9. NAPROXEN [Concomitant]
  10. METFORMIN HCL [Suspect]
  11. LOVASTATIN [Suspect]
     Dosage: 2TAB IN NIGHT

REACTIONS (3)
  - PHOTOSENSITIVITY REACTION [None]
  - DYSPEPSIA [None]
  - FEELING HOT [None]
